FAERS Safety Report 12910562 (Version 2)
Quarter: 2017Q1

REPORT INFORMATION
  Report Type: Spontaneous
  Country: US (occurrence: US)
  Receive Date: 20161104
  Receipt Date: 20170303
  Transmission Date: 20170428
  Serious: Yes (Hospitalization)
  Sender: FDA-Public Use
  Company Number: US-JNJFOC-20161001957

PATIENT
  Age: 75 Year
  Sex: Male

DRUGS (1)
  1. XARELTO [Suspect]
     Active Substance: RIVAROXABAN
     Indication: HYPERLIPIDAEMIA
     Route: 048
     Dates: start: 201405, end: 201410

REACTIONS (3)
  - Off label use [Unknown]
  - Product use issue [Unknown]
  - Haematoma [Unknown]

NARRATIVE: CASE EVENT DATE: 201405
